FAERS Safety Report 4266288-5 (Version None)
Quarter: 2004Q1

REPORT INFORMATION
  Report Type: 
  Country: None (occurrence: None)
  Receive Date: 20040106
  Receipt Date: 20031218
  Transmission Date: 20041129
  Serious: Yes (Death)
  Sender: FDA-Public Use
  Company Number: HCDA20030005

PATIENT
  Age: 60 Year
  Sex: Female

DRUGS (2)
  1. HYDROCODONE/APAP [Suspect]
     Indication: TOOTHACHE
     Dosage: PO
     Route: 048
     Dates: start: 20020101, end: 20020101
  2. CHLORDIAZEPOXIDE [Suspect]
     Indication: ALCOHOL DETOXIFICATION
     Dosage: PO
     Route: 048
     Dates: start: 20020101, end: 20020101

REACTIONS (10)
  - ANOXIC ENCEPHALOPATHY [None]
  - BLOOD CREATININE INCREASED [None]
  - BLOOD LACTIC ACID INCREASED [None]
  - BLOOD PH DECREASED [None]
  - BLOOD PRESSURE SYSTOLIC DECREASED [None]
  - CARDIO-RESPIRATORY ARREST [None]
  - COMA [None]
  - DRUG TOXICITY [None]
  - HEPATOTOXICITY [None]
  - ISCHAEMIC HEPATITIS [None]
